FAERS Safety Report 16939147 (Version 1)
Quarter: 2019Q4

REPORT INFORMATION
  Report Type: Report from Study
  Country: CA (occurrence: CA)
  Receive Date: 20191021
  Receipt Date: 20191021
  Transmission Date: 20200122
  Serious: Yes (Hospitalization)
  Sender: FDA-Public Use
  Company Number: CA-BEH-2019108042

PATIENT
  Age: 63 Year
  Sex: Male

DRUGS (12)
  1. APO RISEDRONATE [Concomitant]
     Active Substance: RISEDRONATE SODIUM
     Route: 065
  2. NASONEX [Concomitant]
     Active Substance: MOMETASONE FUROATE
  3. VALSARTAN. [Concomitant]
     Active Substance: VALSARTAN
     Route: 065
  4. SPIRIVA [Concomitant]
     Active Substance: TIOTROPIUM BROMIDE MONOHYDRATE
     Route: 065
  5. ADVAIR HFA [Concomitant]
     Active Substance: FLUTICASONE PROPIONATE\SALMETEROL XINAFOATE
     Route: 065
  6. NUCALA [Concomitant]
     Active Substance: MEPOLIZUMAB
     Route: 065
  7. SINGULAIR [Concomitant]
     Active Substance: MONTELUKAST SODIUM
     Route: 065
  8. APO-TEMAZEPAM [Concomitant]
     Active Substance: TEMAZEPAM
     Route: 065
  9. PREGABALIN. [Concomitant]
     Active Substance: PREGABALIN
     Route: 065
  10. CODEINE [Concomitant]
     Active Substance: CODEINE
     Route: 065
  11. ALVESCO [Concomitant]
     Active Substance: CICLESONIDE
     Route: 065
  12. HIZENTRA [Suspect]
     Active Substance: HUMAN IMMUNOGLOBULIN G
     Indication: PRIMARY IMMUNODEFICIENCY SYNDROME
     Dosage: 12 GRAM, QW
     Route: 058

REACTIONS (4)
  - Post procedural complication [Recovered/Resolved]
  - Postoperative thoracic procedure complication [Recovered/Resolved]
  - Cardiac valve replacement complication [Recovered/Resolved]
  - Localised infection [Not Recovered/Not Resolved]

NARRATIVE: CASE EVENT DATE: 201909
